FAERS Safety Report 10211607 (Version 1)
Quarter: 2014Q2

REPORT INFORMATION
  Report Type: Spontaneous
  Country: US (occurrence: US)
  Receive Date: 20140602
  Receipt Date: 20140602
  Transmission Date: 20141212
  Serious: Yes (Other)
  Sender: FDA-Public Use
  Company Number: PHHY2014US063546

PATIENT
  Age: 73 Year
  Sex: Male

DRUGS (1)
  1. WARFARIN [Suspect]
     Indication: ATRIAL FIBRILLATION

REACTIONS (8)
  - Nephropathy [Recovered/Resolved]
  - Hypersensitivity vasculitis [Unknown]
  - Chromaturia [Recovered/Resolved]
  - Blood creatinine increased [Recovered/Resolved]
  - Rash erythematous [Recovered/Resolved]
  - Proteinuria [Recovering/Resolving]
  - Haematuria [Recovering/Resolving]
  - Renal impairment [Recovering/Resolving]
